FAERS Safety Report 6329503-X (Version None)
Quarter: 2009Q3

REPORT INFORMATION
  Report Type: 
  Country: None (occurrence: None)
  Receive Date: 20090826
  Receipt Date: 20090821
  Transmission Date: 20100115
  Serious: Yes (Other)
  Sender: FDA-Public Use
  Company Number: US-AMGEN-US360430

PATIENT
  Sex: Female
  Weight: 103.4 kg

DRUGS (13)
  1. NPLATE [Suspect]
     Indication: IDIOPATHIC THROMBOCYTOPENIC PURPURA
     Route: 058
     Dates: start: 20090212, end: 20090422
  2. NPLATE [Suspect]
     Dates: start: 20090219, end: 20090226
  3. NPLATE [Suspect]
     Dates: start: 20090312, end: 20090312
  4. NPLATE [Suspect]
     Dates: start: 20090319, end: 20090319
  5. NPLATE [Suspect]
     Dates: start: 20090326
  6. CORTICOSTEROID NOS [Concomitant]
     Dates: start: 20040623
  7. POTASSIUM CHLORIDE [Concomitant]
  8. AMARYL [Concomitant]
  9. LEVOTHYROXINE SODIUM [Concomitant]
  10. NEURONTIN [Concomitant]
  11. NEXIUM [Concomitant]
  12. VITAMIN D [Concomitant]
  13. PLATELETS [Concomitant]

REACTIONS (5)
  - DRUG INEFFECTIVE [None]
  - EPISTAXIS [None]
  - STOMATITIS [None]
  - THERAPEUTIC RESPONSE DECREASED [None]
  - THROMBOCYTOPENIA [None]
